FAERS Safety Report 9157853 (Version 2)
Quarter: 2013Q2

REPORT INFORMATION
  Report Type: Spontaneous
  Country: US (occurrence: US)
  Receive Date: 20130312
  Receipt Date: 20130517
  Transmission Date: 20140414
  Serious: No
  Sender: FDA-Public Use
  Company Number: US-009507513-1303USA005107

PATIENT
  Sex: Male

DRUGS (7)
  1. VICTRELIS [Suspect]
     Dosage: 4 DF (800 MG), Q8H WITH FOOD
     Route: 048
  2. RIBAVIRIN [Suspect]
     Route: 048
  3. PEGASYS [Suspect]
  4. CELEBREX [Concomitant]
  5. PAXIL [Concomitant]
  6. AMLODIPINE [Concomitant]
  7. ASACOL [Concomitant]

REACTIONS (8)
  - Oropharyngeal pain [Unknown]
  - Pain [Unknown]
  - Pruritus [Unknown]
  - White blood cell count decreased [Unknown]
  - Asthenia [Unknown]
  - Irritability [Unknown]
  - Crying [Unknown]
  - Inappropriate affect [Unknown]
